FAERS Safety Report 15002531 (Version 2)
Quarter: 2018Q2

REPORT INFORMATION
  Report Type: Report from Study
  Country: ES (occurrence: ES)
  Receive Date: 20180612
  Receipt Date: 20180614
  Transmission Date: 20180711
  Serious: Yes (Hospitalization)
  Sender: FDA-Public Use
  Company Number: PHHO2018ES006501

PATIENT
  Age: 47 Year
  Sex: Female
  Weight: 63.4 kg

DRUGS (19)
  1. LEE011 [Suspect]
     Active Substance: RIBOCICLIB
     Indication: BREAST CANCER
     Dosage: 400 MG, OT
     Route: 048
     Dates: start: 20170914
  2. IBUPROFEN. [Concomitant]
     Active Substance: IBUPROFEN
     Indication: HEADACHE
  3. GOSERELIN ACETATE [Suspect]
     Active Substance: GOSERELIN ACETATE
     Indication: BREAST CANCER
     Dosage: 3.6 MG, QMO
     Route: 058
     Dates: start: 20170914, end: 20180425
  4. GOSERELIN ACETATE [Suspect]
     Active Substance: GOSERELIN ACETATE
     Dosage: 3.6 MG, QMO
     Route: 058
     Dates: end: 20180524
  5. ALPRAZOLAM. [Concomitant]
     Active Substance: ALPRAZOLAM
     Indication: INSOMNIA
     Dosage: 1 MG, QD
     Route: 048
     Dates: start: 20161215
  6. PRIMPERAN [Concomitant]
     Active Substance: METOCLOPRAMIDE HYDROCHLORIDE
     Indication: PROPHYLAXIS OF NAUSEA AND VOMITING
     Dosage: 10 MG, PRN
     Route: 048
     Dates: start: 20180518
  7. IBUPROFEN. [Concomitant]
     Active Substance: IBUPROFEN
     Indication: LYMPHOEDEMA
     Dosage: 600 MG, PRN
     Route: 048
  8. PARACETAMOL [Concomitant]
     Active Substance: ACETAMINOPHEN
     Indication: PAIN
  9. DEXKETOPROFEN [Concomitant]
     Active Substance: DEXKETOPROFEN
     Indication: BONE PAIN
     Dosage: 25 MG, TID
     Route: 048
     Dates: start: 20180412
  10. LETROZOLE. [Suspect]
     Active Substance: LETROZOLE
     Indication: BREAST CANCER
     Dosage: 2.5 MG, CONT
     Route: 048
     Dates: start: 20170914, end: 20180517
  11. IBUPROFEN. [Concomitant]
     Active Substance: IBUPROFEN
     Indication: PAIN
  12. PARACETAMOL [Concomitant]
     Active Substance: ACETAMINOPHEN
     Indication: BONE PAIN
  13. LEE011 [Suspect]
     Active Substance: RIBOCICLIB
     Dosage: 400 MG, OT
     Route: 048
     Dates: start: 20171114, end: 20180524
  14. IBUPROFEN. [Concomitant]
     Active Substance: IBUPROFEN
     Indication: BONE PAIN
  15. PARACETAMOL [Concomitant]
     Active Substance: ACETAMINOPHEN
     Indication: HEADACHE
  16. LEE011 [Suspect]
     Active Substance: RIBOCICLIB
     Dosage: 600 MG, OT
     Route: 048
     Dates: end: 20171030
  17. LETROZOLE. [Suspect]
     Active Substance: LETROZOLE
     Dosage: 2.5 MG, CONT
     Route: 048
     Dates: end: 20180528
  18. PARACETAMOL [Concomitant]
     Active Substance: ACETAMINOPHEN
     Indication: LYMPHOEDEMA
     Dosage: 1 G, PRN
     Route: 048
  19. OMEPRAZOLE. [Concomitant]
     Active Substance: OMEPRAZOLE
     Indication: PROPHYLAXIS
     Dosage: 20 MG, QD
     Route: 048
     Dates: start: 20180401

REACTIONS (1)
  - Sepsis [Recovered/Resolved]

NARRATIVE: CASE EVENT DATE: 20180517
